FAERS Safety Report 12386101 (Version 2)
Quarter: 2016Q2

REPORT INFORMATION
  Report Type: Spontaneous
  Country: SE (occurrence: SE)
  Receive Date: 20160519
  Receipt Date: 20160601
  Transmission Date: 20160815
  Serious: Yes (Hospitalization)
  Sender: FDA-Public Use
  Company Number: SE-B.I. PHARMACEUTICALS,INC./RIDGEFIELD-2016-BI-23065SW

PATIENT
  Age: 64 Year
  Sex: Male

DRUGS (5)
  1. DOCETAXEL. [Concomitant]
     Active Substance: DOCETAXEL
     Indication: PRODUCT USED FOR UNKNOWN INDICATION
     Route: 065
     Dates: start: 20160331
  2. ALIMTA [Concomitant]
     Active Substance: PEMETREXED DISODIUM
     Indication: PRODUCT USED FOR UNKNOWN INDICATION
     Route: 065
     Dates: start: 20151204, end: 20160303
  3. VARGATEF [Suspect]
     Active Substance: NINTEDANIB
     Indication: LUNG CANCER METASTATIC
     Route: 065
     Dates: start: 20160401, end: 20160403
  4. TAXOTERE [Suspect]
     Active Substance: DOCETAXEL
     Indication: LUNG ADENOCARCINOMA METASTATIC
     Route: 065
  5. CISPLATIN. [Concomitant]
     Active Substance: CISPLATIN
     Indication: PRODUCT USED FOR UNKNOWN INDICATION
     Route: 065
     Dates: start: 20151204, end: 20160303

REACTIONS (2)
  - Gastrointestinal disorder [Unknown]
  - Jejunal perforation [Unknown]

NARRATIVE: CASE EVENT DATE: 20160403
